FAERS Safety Report 8862086 (Version 3)
Quarter: 2012Q4

REPORT INFORMATION
  Report Type: 
  Country: US (occurrence: US)
  Receive Date: 20121026
  Receipt Date: 20121204
  Transmission Date: 20130627
  Serious: Yes (Other)
  Sender: FDA-Public Use
  Company Number: US-PFIZER INC-2012265785

PATIENT
  Age: 65 Year
  Sex: Female
  Weight: 112.93 kg

DRUGS (1)
  1. CELEBREX [Suspect]
     Indication: ARTHRITIC PAINS
     Dosage: 200 mg, as needed
     Route: 048
     Dates: start: 2000, end: 20120413

REACTIONS (2)
  - Arthropathy [Unknown]
  - Pain [Unknown]
